FAERS Safety Report 7621093-4 (Version None)
Quarter: 2011Q3

REPORT INFORMATION
  Report Type: 
  Country: None (occurrence: None)
  Receive Date: 20110719
  Receipt Date: 20110503
  Transmission Date: 20111222
  Serious: No
  Sender: FDA-Public Use
  Company Number: US-KINGPHARMUSA00001-K201100551

PATIENT
  Age: 72 Year
  Sex: Female
  Weight: 55.329 kg

DRUGS (10)
  1. MULTI-VITAMIN [Concomitant]
     Dosage: UNK
  2. ACIDOPHILUS [Concomitant]
     Indication: DYSPEPSIA
     Dosage: UNK
  3. LEVOXYL [Suspect]
     Dosage: 75 MCG, QD
     Route: 048
     Dates: start: 20110428
  4. METOPROLOL TARTRATE [Concomitant]
     Indication: BLOOD PRESSURE
     Dosage: UNK
  5. ASCORBIC ACID [Concomitant]
     Dosage: UNK
  6. CALCIUM CARBONATE [Concomitant]
     Dosage: UNK
  7. LEVOXYL [Suspect]
     Dosage: 75 MCG, QD
     Route: 048
     Dates: start: 20110101, end: 20110421
  8. VITAMIN D [Concomitant]
     Dosage: UNK
  9. LOVAZA [Concomitant]
     Dosage: UNK
     Dates: end: 20110421
  10. LEVOXYL [Suspect]
     Dosage: 50 MCG, QD
     Route: 048
     Dates: start: 20100101, end: 20110101

REACTIONS (5)
  - RASH PRURITIC [None]
  - FEELING ABNORMAL [None]
  - DIZZINESS [None]
  - ALOPECIA [None]
  - ERYTHEMA [None]
